FAERS Safety Report 7088415-7 (Version None)
Quarter: 2010Q4

REPORT INFORMATION
  Report Type: 
  Country: None (occurrence: None)
  Receive Date: 20101029
  Receipt Date: 20100921
  Transmission Date: 20110411
  Serious: Yes (Other)
  Sender: FDA-Public Use
  Company Number: ACO_01702_2010

PATIENT
  Age: 60 Year
  Sex: Female

DRUGS (5)
  1. AMPYRA [Suspect]
     Indication: PRODUCT USED FOR UNKNOWN INDICATION
     Dosage: (DF)
     Dates: start: 20100804, end: 20100805
  2. AMANTADINE [Concomitant]
  3. NEURONTIN [Concomitant]
  4. IBUPROFEN [Concomitant]
  5. MULTIVITAMINS, COMBINATIONS [Concomitant]

REACTIONS (3)
  - DISORIENTATION [None]
  - DIZZINESS [None]
  - MENTAL IMPAIRMENT [None]
